FAERS Safety Report 16482359 (Version 1)
Quarter: 2019Q2

REPORT INFORMATION
  Report Type: Spontaneous
  Country: CA (occurrence: CA)
  Receive Date: 20190627
  Receipt Date: 20190627
  Transmission Date: 20190711
  Serious: Yes (Other)
  Sender: FDA-Public Use
  Company Number: CA-TEVA-2019-CA-1067789

PATIENT
  Age: 66 Year
  Sex: Male

DRUGS (1)
  1. AMOXICILLIN/CLAVULANIC ACID [Suspect]
     Active Substance: AMOXICILLIN\CLAVULANIC ACID
     Route: 048

REACTIONS (5)
  - Lip swelling [Unknown]
  - Rash [Unknown]
  - Pruritus generalised [Unknown]
  - Erythema [Unknown]
  - Eye swelling [Unknown]
